FAERS Safety Report 10069831 (Version 1)
Quarter: 2014Q2

REPORT INFORMATION
  Report Type: Spontaneous
  Country: US (occurrence: None)
  Receive Date: 20140409
  Receipt Date: 20140409
  Transmission Date: 20141212
  Serious: Yes (Life-Threatening, Disabling)
  Sender: FDA-Public Use
  Company Number: None

PATIENT
  Age: 64 Year
  Sex: Female
  Weight: 73.94 kg

DRUGS (4)
  1. RISPERDAL [Suspect]
     Indication: SCHIZOPHRENIA
     Dosage: TWICE A MONTH INJECTION UNTIL HAIR FEEL OUT
     Dates: end: 20140324
  2. RISPERDAL [Suspect]
     Indication: PARANOIA
     Dosage: TWICE A MONTH INJECTION UNTIL HAIR FEEL OUT
     Dates: end: 20140324
  3. LISINOPRIL [Concomitant]
  4. RED YEAST RICE [Concomitant]

REACTIONS (6)
  - Pituitary tumour [None]
  - Alopecia [None]
  - Weight increased [None]
  - Cerebrovascular accident [None]
  - Blood prolactin increased [None]
  - Blindness unilateral [None]
